FAERS Safety Report 20547772 (Version 1)
Quarter: 2022Q1

REPORT INFORMATION
  Report Type: Spontaneous
  Country: HR (occurrence: HR)
  Receive Date: 20220303
  Receipt Date: 20220303
  Transmission Date: 20220423
  Serious: Yes (Other)
  Sender: FDA-Public Use
  Company Number: HR-ALLERGAN-2207276US

PATIENT
  Sex: Male

DRUGS (6)
  1. ESCITALOPRAM OXALATE [Suspect]
     Active Substance: ESCITALOPRAM OXALATE
     Indication: Product used for unknown indication
     Dosage: UNK
     Route: 048
     Dates: start: 202108, end: 202108
  2. LAMOTRIGINE [Suspect]
     Active Substance: LAMOTRIGINE
     Indication: Product used for unknown indication
     Dosage: UNK
     Route: 048
     Dates: start: 202108, end: 202108
  3. ALPRAZOLAM [Suspect]
     Active Substance: ALPRAZOLAM
     Indication: Product used for unknown indication
     Dosage: UNK
     Route: 048
     Dates: start: 202108, end: 202108
  4. CLOZAPINE [Suspect]
     Active Substance: CLOZAPINE
     Indication: Product used for unknown indication
     Dosage: UNK
     Route: 048
     Dates: start: 202108, end: 202108
  5. MIRTAZAPINE [Suspect]
     Active Substance: MIRTAZAPINE
     Indication: Product used for unknown indication
     Dosage: UNK
     Route: 048
     Dates: start: 202108, end: 202108
  6. NITRAZEPAM [Suspect]
     Active Substance: NITRAZEPAM
     Indication: Product used for unknown indication
     Dosage: UNK
     Route: 048
     Dates: start: 202108, end: 202108

REACTIONS (3)
  - Hyporesponsive to stimuli [Unknown]
  - Altered state of consciousness [Unknown]
  - Suicide attempt [Unknown]

NARRATIVE: CASE EVENT DATE: 20210801
